FAERS Safety Report 4765750-6 (Version None)
Quarter: 2005Q3

REPORT INFORMATION
  Report Type: 
  Country: None (occurrence: None)
  Receive Date: 20050912
  Receipt Date: 20050830
  Transmission Date: 20060218
  Serious: Yes (Other)
  Sender: FDA-Public Use
  Company Number: PHEH2005US09778

PATIENT
  Sex: Female

DRUGS (3)
  1. PRENATAL VITAMINS [Concomitant]
     Route: 064
  2. CEPHALEXIN [Concomitant]
     Route: 064
  3. ZELNORM [Suspect]
     Route: 064

REACTIONS (2)
  - DRUG EXPOSURE DURING PREGNANCY [None]
  - SMALL FOR DATES BABY [None]
